FAERS Safety Report 15892886 (Version 1)
Quarter: 2019Q1

REPORT INFORMATION
  Report Type: Report from Study
  Country: US (occurrence: US)
  Receive Date: 20190130
  Receipt Date: 20190130
  Transmission Date: 20190417
  Serious: No
  Sender: FDA-Public Use
  Company Number: US-EXELIXIS-CABO-18015844

PATIENT
  Sex: Male

DRUGS (2)
  1. CABOMETYX [Suspect]
     Active Substance: CABOZANTINIB S-MALATE
     Indication: RENAL CANCER
     Dosage: 60 MG, QD
     Route: 048
  2. CABOMETYX [Suspect]
     Active Substance: CABOZANTINIB S-MALATE
     Dosage: 60 MG, UNK (EVERY 36 HOURS)
     Route: 048

REACTIONS (5)
  - Dyspepsia [Unknown]
  - Red blood cell count decreased [Recovered/Resolved]
  - Skin ulcer [Recovered/Resolved]
  - Rash [Unknown]
  - Blister [Unknown]
